FAERS Safety Report 4335273-7 (Version None)
Quarter: 2004Q2

REPORT INFORMATION
  Report Type: 
  Country: None (occurrence: None)
  Receive Date: 20040406
  Receipt Date: 20040310
  Transmission Date: 20050107
  Serious: Yes (Other)
  Sender: FDA-Public Use
  Company Number: 361440

PATIENT
  Sex: Female

DRUGS (1)
  1. FUZEON [Suspect]
     Dosage: SUBCUTANEOUS
     Route: 058

REACTIONS (2)
  - ADVERSE EVENT [None]
  - INJECTION SITE URTICARIA [None]
